FAERS Safety Report 20804271 (Version 1)
Quarter: 2022Q2

REPORT INFORMATION
  Report Type: Spontaneous
  Country: GB (occurrence: None)
  Receive Date: 20220509
  Receipt Date: 20220509
  Transmission Date: 20220720
  Serious: Yes (Hospitalization)
  Sender: FDA-Public Use
  Company Number: 2022A169655

PATIENT
  Age: 58 Year
  Sex: Male

DRUGS (11)
  1. DAPAGLIFLOZIN [Suspect]
     Active Substance: DAPAGLIFLOZIN
     Dosage: EACH MORNING
     Route: 065
  2. EDOXABAN [Suspect]
     Active Substance: EDOXABAN
     Dosage: EACH MORNING
     Route: 065
  3. ENTRESTO [Suspect]
     Active Substance: SACUBITRIL\VALSARTAN
     Dosage: 24MG/26MG
     Route: 065
  4. BISOPROLOL [Concomitant]
     Active Substance: BISOPROLOL
     Dosage: EACH MORNING
     Route: 065
  5. DERMOL [Concomitant]
     Active Substance: BENZALKONIUM CHLORIDE\CHLORHEXIDINE HYDROCHLORIDE\ISOPROPYL MYRISTATE\PARAFFIN
     Dosage: APPLY TO THE SKIN OR USE AS A SOAP SUBSTITUTE
     Route: 061
  6. FAMOTIDINE [Concomitant]
     Active Substance: FAMOTIDINE
     Dosage: AT NIGHT
     Route: 065
  7. FUROSEMIDE [Concomitant]
     Active Substance: FUROSEMIDE
     Dosage: EACH MORNING
     Route: 065
  8. VIMPAT [Concomitant]
     Active Substance: LACOSAMIDE
     Dosage: IN THE MORNING
     Route: 065
  9. VIMPAT [Concomitant]
     Active Substance: LACOSAMIDE
     Dosage: AT NIGHT
     Route: 065
  10. MOMETASONE [Concomitant]
     Active Substance: MOMETASONE
     Dosage: IN EACH NOSTRIL
     Route: 045
  11. VALPROATE SODIUM [Concomitant]
     Active Substance: VALPROATE SODIUM
     Route: 065

REACTIONS (1)
  - Drug-induced liver injury [Unknown]
